FAERS Safety Report 10160406 (Version 1)
Quarter: 2014Q2

REPORT INFORMATION
  Report Type: Spontaneous
  Country: US (occurrence: US)
  Receive Date: 20140508
  Receipt Date: 20140508
  Transmission Date: 20141212
  Serious: No
  Sender: FDA-Public Use
  Company Number: US-009507513-1405USA003821

PATIENT
  Age: 53 Year
  Sex: Female

DRUGS (1)
  1. DULERA [Suspect]
     Indication: CHRONIC OBSTRUCTIVE PULMONARY DISEASE
     Dosage: 2 PUFF TWICE A DAY
     Route: 055
     Dates: start: 201402

REACTIONS (3)
  - Poor quality sleep [Not Recovered/Not Resolved]
  - Underdose [Unknown]
  - Product quality issue [Unknown]
